FAERS Safety Report 14847201 (Version 4)
Quarter: 2018Q2

REPORT INFORMATION
  Report Type: Report from Study
  Country: CA (occurrence: CA)
  Receive Date: 20180504
  Receipt Date: 20180619
  Transmission Date: 20180711
  Serious: Yes (Other)
  Sender: FDA-Public Use
  Company Number: PHHY2018CA058308

PATIENT
  Age: 75 Year
  Sex: Female

DRUGS (1)
  1. SANDOSTATIN LAR DEPOT [Suspect]
     Active Substance: OCTREOTIDE ACETATE
     Indication: CARCINOID TUMOUR
     Dosage: 20 MG, QMO (EVERY 4 WEEKS)
     Route: 030
     Dates: start: 20171227

REACTIONS (7)
  - Second primary malignancy [Unknown]
  - Musculoskeletal stiffness [Unknown]
  - Lung neoplasm malignant [Unknown]
  - Lymphoma [Unknown]
  - Neck pain [Unknown]
  - Malignant neoplasm progression [Unknown]
  - Nuchal rigidity [Unknown]

NARRATIVE: CASE EVENT DATE: 201803
